FAERS Safety Report 17077926 (Version 9)
Quarter: 2021Q3

REPORT INFORMATION
  Report Type: Spontaneous
  Country: GB (occurrence: GB)
  Receive Date: 20191126
  Receipt Date: 20210917
  Transmission Date: 20211014
  Serious: Yes (Hospitalization, Disabling, Other)
  Sender: FDA-Public Use
  Company Number: GB-BAUSCH-BL-2019-062467

PATIENT
  Age: 8 Year
  Sex: Female
  Weight: 23.35 kg

DRUGS (29)
  1. DEXAMETHASONE. [Suspect]
     Active Substance: DEXAMETHASONE
     Dosage: VARIABLE 4MG BD WEANED TO 0.5MG SECOND DAILY
     Route: 065
     Dates: start: 20191111, end: 20200221
  2. VANDETANIB. [Suspect]
     Active Substance: VANDETANIB
     Indication: BRAIN STEM GLIOMA
     Dosage: (65MG/M2)
     Route: 048
     Dates: start: 20191009, end: 20191014
  3. LANSOPRAZOLE. [Suspect]
     Active Substance: LANSOPRAZOLE
     Indication: PRODUCT USED FOR UNKNOWN INDICATION
     Route: 065
  4. RANITIDINE. [Suspect]
     Active Substance: RANITIDINE
     Indication: GASTROOESOPHAGEAL REFLUX DISEASE
     Dosage: 50 MG, BID
     Route: 065
     Dates: start: 20191018
  5. VANDETANIB. [Suspect]
     Active Substance: VANDETANIB
     Dosage: 100 MG, QOD (65 MG/M2)
     Route: 048
     Dates: start: 20191018, end: 20200207
  6. RANITIDINE. [Concomitant]
     Active Substance: RANITIDINE
     Indication: PRODUCT USED FOR UNKNOWN INDICATION
     Route: 065
     Dates: start: 20191018
  7. VANDETANIB. [Suspect]
     Active Substance: VANDETANIB
     Dosage: 54 MG, QD (54 MG/M2, QD)
     Route: 048
     Dates: start: 20200212, end: 20200302
  8. EVEROLIMUS. [Suspect]
     Active Substance: EVEROLIMUS
     Dosage: 5 MG ON MONDAY, WEDNESDAY AND FRIDAY AND 2.5 MG ON TUESDAY, THURSDAY, SATURDAY AND SUNDAY
     Route: 048
     Dates: start: 20191001
  9. DEXAMETHASONE. [Suspect]
     Active Substance: DEXAMETHASONE
     Indication: PRODUCT USED FOR UNKNOWN INDICATION
     Route: 065
  10. DEXAMETHASONE. [Suspect]
     Active Substance: DEXAMETHASONE
     Dosage: 1.6 MG, QD
     Route: 048
     Dates: start: 20210215, end: 20210221
  11. EVEROLIMUS. [Suspect]
     Active Substance: EVEROLIMUS
     Indication: BRAIN STEM GLIOMA
     Dosage: 5 MG ON MONDAY, WEDNESDAY AND FRIDAY AND 2.5 MG ON TUESDAY,THURSDAY,SATURDAY AND SUNDAY
     Route: 048
     Dates: start: 20190717, end: 20200207
  12. EVEROLIMUS. [Suspect]
     Active Substance: EVEROLIMUS
     Dosage: 5 MG QD MONDAY/WEDNESDAY/FRIDAY
     Route: 048
     Dates: start: 20200212
  13. EVEROLIMUS. [Suspect]
     Active Substance: EVEROLIMUS
     Dosage: 2.5 MG TUESDAY/THURSDAY/SATURDAY/SUNDAY
     Route: 048
     Dates: start: 20210207
  14. LOPERAMIDE [Suspect]
     Active Substance: LOPERAMIDE
     Indication: DIARRHOEA
     Dosage: 2 MG, Q4D (2 MG ONE CAPSULE UP TO FOUR TIMES A DAY)
     Route: 065
  15. DEXAMETHASONE. [Suspect]
     Active Substance: DEXAMETHASONE
     Dosage: 3.5 MG, QD
     Route: 048
     Dates: start: 20200212
  16. VANDETANIB. [Suspect]
     Active Substance: VANDETANIB
     Dosage: 100 MG, QOW
     Route: 048
     Dates: start: 20200212, end: 20200302
  17. EVEROLIMUS. [Suspect]
     Active Substance: EVEROLIMUS
     Dosage: 5 MG ON MONDAY, WEDNESDAY AND FRIDAY
     Route: 048
     Dates: start: 20200207
  18. EVEROLIMUS. [Suspect]
     Active Substance: EVEROLIMUS
     Dosage: 2.5 MG, QD TUESDAY/THURSDAY/SATURDAY/SUNDAY
     Route: 048
     Dates: start: 20200212
  19. PARACETAMOL [Suspect]
     Active Substance: ACETAMINOPHEN
     Indication: PRODUCT USED FOR UNKNOWN INDICATION
     Dosage: PM
     Route: 065
  20. VANDETANIB. [Suspect]
     Active Substance: VANDETANIB
     Dosage: 65 MG/M2, QOW
     Route: 048
     Dates: start: 20200316, end: 20200420
  21. LOPERAMIDE [Suspect]
     Active Substance: LOPERAMIDE
     Indication: PROPHYLAXIS
  22. RANITIDINE. [Suspect]
     Active Substance: RANITIDINE
     Route: 065
  23. DEXAMETHASONE. [Suspect]
     Active Substance: DEXAMETHASONE
     Indication: PRODUCT USE IN UNAPPROVED INDICATION
     Route: 048
     Dates: start: 20200207, end: 20200221
  24. EVEROLIMUS. [Suspect]
     Active Substance: EVEROLIMUS
     Dosage: UNK (5 MG MONDAY/WEDNESDAY/FRIDAY AND 2.5 MG TUESDAY/THURSDAY/SATURDAY/SUNDAY)
     Route: 048
     Dates: start: 20200213
  25. COTRIMOXAZOLE [Concomitant]
     Active Substance: SULFAMETHOXAZOLE\TRIMETHOPRIM
  26. DEXAMETHASONE. [Concomitant]
     Active Substance: DEXAMETHASONE
     Indication: PRODUCT USED FOR UNKNOWN INDICATION
     Dosage: VARIABLE; 4MG BD WEANED TO 0.5MG SECOND DAILY
     Dates: start: 20191101, end: 20200221
  27. DEXAMETHASONE. [Suspect]
     Active Substance: DEXAMETHASONE
     Indication: PRODUCT USED FOR UNKNOWN INDICATION
     Dosage: 3.5 MG, Q12H
     Route: 048
     Dates: start: 20210210
  28. DEXAMETHASONE. [Suspect]
     Active Substance: DEXAMETHASONE
     Dosage: VARIABLE 4MG BD WEANED TO 0.5MG SECOND DAILY
     Route: 065
     Dates: start: 20191101, end: 20200221
  29. COTRIMOXAZOLE [Concomitant]
     Active Substance: SULFAMETHOXAZOLE\TRIMETHOPRIM
     Indication: PRODUCT USED FOR UNKNOWN INDICATION
     Dosage: 360 MG BD ON SAT/SUN ONLY

REACTIONS (35)
  - Electrocardiogram QT prolonged [Recovered/Resolved]
  - Hypertension [Recovered/Resolved]
  - Malignant neoplasm progression [Unknown]
  - Blood triglycerides increased [Unknown]
  - Myoclonus [Recovered/Resolved]
  - Hypophosphataemia [Recovered/Resolved]
  - Off label use [Unknown]
  - Lymphocyte count decreased [Not Recovered/Not Resolved]
  - Facial paralysis [Recovered/Resolved]
  - Flatulence [Recovered/Resolved]
  - Blood cholesterol increased [Not Recovered/Not Resolved]
  - Ocular hyperaemia [Recovered/Resolved]
  - Hemiparesis [Recovered/Resolved]
  - Neutrophil count decreased [Recovered/Resolved]
  - Neutrophil count decreased [Recovered/Resolved]
  - Blood creatinine increased [Recovered/Resolved]
  - Disease progression [Unknown]
  - Abdominal distension [Recovered/Resolved]
  - Blood cholesterol increased [Recovered/Resolved]
  - Facial paralysis [Recovered/Resolved]
  - Ataxia [Recovered/Resolved]
  - Ataxia [Not Recovered/Not Resolved]
  - Hypophagia [Not Recovered/Not Resolved]
  - Blood cholesterol increased [Unknown]
  - Stomatitis [Recovered/Resolved]
  - Blood creatinine increased [Recovered/Resolved]
  - Brain stem glioma [Unknown]
  - White blood cell count decreased [Not Recovered/Not Resolved]
  - Alanine aminotransferase increased [Recovered/Resolved]
  - Medication error [Unknown]
  - Gastrooesophageal reflux disease [Recovered/Resolved]
  - Reflux gastritis [Recovered/Resolved]
  - Blood creatinine increased [Unknown]
  - Abdominal distension [Recovered/Resolved]
  - Product use in unapproved indication [Unknown]

NARRATIVE: CASE EVENT DATE: 20191106
